FAERS Safety Report 18440827 (Version 1)
Quarter: 2020Q4

REPORT INFORMATION
  Report Type: Spontaneous
  Country: US (occurrence: US)
  Receive Date: 20201029
  Receipt Date: 20201029
  Transmission Date: 20210114
  Serious: Yes (Hospitalization)
  Sender: FDA-Public Use
  Company Number: None

PATIENT
  Age: 81 Year
  Sex: Female

DRUGS (5)
  1. OLMESA MEDOX TAB 20MG [Concomitant]
     Dates: start: 20200527
  2. SENSIPAR [Suspect]
     Active Substance: CINACALCET HYDROCHLORIDE
     Route: 048
     Dates: start: 20180924
  3. LEVOTHYROXIN TAB 50MG [Concomitant]
     Dates: start: 20200304
  4. ROSUVASTATIN TAB 10MG [Concomitant]
     Active Substance: ROSUVASTATIN
     Dates: start: 20200907
  5. VITAMIN D [Suspect]
     Active Substance: VITAMIN D NOS

REACTIONS (2)
  - Blood pressure increased [None]
  - Myocardial infarction [None]

NARRATIVE: CASE EVENT DATE: 20201028
